FAERS Safety Report 14906960 (Version 2)
Quarter: 2018Q2

REPORT INFORMATION
  Report Type: Report from Study
  Country: US (occurrence: US)
  Receive Date: 20180517
  Receipt Date: 20180626
  Transmission Date: 20180711
  Serious: No
  Sender: FDA-Public Use
  Company Number: PHEH2018US018424

PATIENT
  Age: 38 Year
  Sex: Female

DRUGS (1)
  1. COSENTYX [Suspect]
     Active Substance: SECUKINUMAB
     Indication: PSORIASIS
     Dosage: 300 MG, QW
     Route: 058
     Dates: start: 20180409

REACTIONS (4)
  - Oropharyngeal pain [Unknown]
  - Rash [Unknown]
  - Oral candidiasis [Unknown]
  - Urticaria [Unknown]

NARRATIVE: CASE EVENT DATE: 20180611
